FAERS Safety Report 7340235-1 (Version None)
Quarter: 2011Q1

REPORT INFORMATION
  Report Type: 
  Country: None (occurrence: None)
  Receive Date: 20110309
  Receipt Date: 20110224
  Transmission Date: 20110831
  Serious: Yes (Other)
  Sender: FDA-Public Use
  Company Number: US-CELGENEUS-163-21880-11020071

PATIENT
  Sex: Female

DRUGS (7)
  1. LEVOTHYROXINE [Concomitant]
     Route: 065
  2. REVLIMID [Suspect]
     Dosage: 2.5 MILLIGRAM
     Route: 048
     Dates: start: 20110113
  3. LISINOPRIL [Concomitant]
     Route: 065
  4. PRAVASTATIN [Concomitant]
     Route: 065
  5. REVLIMID [Suspect]
     Indication: MYELODYSPLASTIC SYNDROME
     Dosage: 5 MILLIGRAM
     Route: 048
     Dates: start: 20100923, end: 20101007
  6. CALCIUM WITH VITAMIN D [Concomitant]
     Route: 065
  7. FERROUS SULFATE TAB [Concomitant]
     Indication: IRON DEFICIENCY
     Route: 065

REACTIONS (9)
  - PLATELET COUNT DECREASED [None]
  - FATIGUE [None]
  - DIZZINESS [None]
  - NAUSEA [None]
  - HYPOTENSION [None]
  - VOMITING [None]
  - ASTHENIA [None]
  - DEHYDRATION [None]
  - HYPERCALCAEMIA [None]
